FAERS Safety Report 6812774-0 (Version None)
Quarter: 2010Q3

REPORT INFORMATION
  Report Type: 
  Country: None (occurrence: None)
  Receive Date: 20100701
  Receipt Date: 20100623
  Transmission Date: 20110219
  Serious: Yes (Disabling)
  Sender: FDA-Public Use
  Company Number: B0653306A

PATIENT
  Sex: Male

DRUGS (3)
  1. PAXIL [Suspect]
     Indication: PRODUCT USED FOR UNKNOWN INDICATION
     Route: 048
  2. DEPAS [Concomitant]
     Route: 048
     Dates: start: 20091217
  3. DEPAKENE [Concomitant]
     Route: 048
     Dates: start: 20091217

REACTIONS (2)
  - AGGRESSION [None]
  - OVERDOSE [None]
